FAERS Safety Report 6659850-3 (Version None)
Quarter: 2010Q1

REPORT INFORMATION
  Report Type: 
  Country: None (occurrence: None)
  Receive Date: 20100330
  Receipt Date: 20100330
  Transmission Date: 20100710
  Serious: Yes (Death)
  Sender: FDA-Public Use
  Company Number: None

PATIENT
  Age: 67 Year
  Sex: Male

DRUGS (4)
  1. REVLIMID [Suspect]
     Indication: MULTIPLE MYELOMA
     Dosage: 10MG DAILY ORALLY
     Route: 048
     Dates: start: 20071023, end: 20090922
  2. ATENOLOL [Concomitant]
  3. OMEPRAZOLE [Concomitant]
  4. PAROXETINE HCL [Concomitant]

REACTIONS (1)
  - PNEUMONIA [None]
